FAERS Safety Report 9735288 (Version 2)
Quarter: 2014Q1

REPORT INFORMATION
  Report Type: Spontaneous
  Country: DE (occurrence: DE)
  Receive Date: 20131206
  Receipt Date: 20140113
  Transmission Date: 20141002
  Serious: Yes (Hospitalization, Other)
  Sender: FDA-Public Use
  Company Number: DE-PFIZER INC-2013343771

PATIENT
  Age: 72 Year
  Sex: Male

DRUGS (5)
  1. SORTIS [Suspect]
     Dosage: 20 MG, UNK
     Dates: end: 201308
  2. INSPRA [Interacting]
     Dosage: 25 MG, UNK
  3. ATORVASTATIN HEXAL [Suspect]
     Dosage: UNK
     Dates: start: 201308, end: 2013
  4. TOREM [Suspect]
  5. SPIRONOLACTONE [Suspect]

REACTIONS (5)
  - Drug interaction [Not Recovered/Not Resolved]
  - Gamma-glutamyltransferase increased [Not Recovered/Not Resolved]
  - Myocardial infarction [Unknown]
  - Cardiac failure [Unknown]
  - Gynaecomastia [Recovering/Resolving]
